FAERS Safety Report 4434469-3 (Version None)
Quarter: 2004Q3

REPORT INFORMATION
  Report Type: 
  Country: None (occurrence: None)
  Receive Date: 20040726
  Receipt Date: 20040219
  Transmission Date: 20050211
  Serious: No
  Sender: FDA-Public Use
  Company Number: USA040259767

PATIENT
  Age: 70 Year
  Sex: Female
  Weight: 75 kg

DRUGS (10)
  1. FORTEO [Suspect]
     Indication: OSTEOPOROSIS
     Dosage: 20 UG/1 DAY
     Dates: start: 20031024
  2. DARVOCET-N 100 [Concomitant]
  3. COUMADIN [Concomitant]
  4. CRESTOR [Concomitant]
  5. VERAPAMIL [Concomitant]
  6. LASIX [Concomitant]
  7. BUSPAR [Concomitant]
  8. SYNTHROID [Concomitant]
  9. KLOR-CON [Concomitant]
  10. VALIUM [Concomitant]

REACTIONS (2)
  - CONTUSION [None]
  - LABORATORY TEST ABNORMAL [None]
